FAERS Safety Report 6175832-2 (Version None)
Quarter: 2009Q2

REPORT INFORMATION
  Report Type: 
  Country: None (occurrence: None)
  Receive Date: 20090501
  Receipt Date: 20090422
  Transmission Date: 20091009
  Serious: Yes (Hospitalization)
  Sender: FDA-Public Use
  Company Number: GB-AMGEN-QUU344120

PATIENT
  Sex: Male

DRUGS (5)
  1. NEULASTA [Suspect]
     Indication: CHEMOTHERAPY
     Route: 065
     Dates: start: 20090109
  2. CISPLATIN [Concomitant]
     Dates: start: 20090109
  3. ZOMETA [Concomitant]
     Dates: start: 20090109
  4. AVASTIN [Concomitant]
     Dates: start: 20090109
  5. PEMETREXED DISODIUM [Concomitant]
     Dates: start: 20090109

REACTIONS (3)
  - BODY TEMPERATURE INCREASED [None]
  - BONE PAIN [None]
  - CHILLS [None]
